FAERS Safety Report 4431219-1 (Version None)
Quarter: 2004Q3

REPORT INFORMATION
  Report Type: 
  Country: None (occurrence: None)
  Receive Date: 20040824
  Receipt Date: 20040819
  Transmission Date: 20050211
  Serious: Yes (Hospitalization)
  Sender: FDA-Public Use
  Company Number: 200412577EU

PATIENT
  Age: 75 Year
  Sex: Male

DRUGS (8)
  1. FUROSEMIDE [Suspect]
     Indication: HYPERTENSION
     Route: 048
     Dates: end: 20040730
  2. GLUCOPHAGE [Suspect]
     Indication: DIABETES MELLITUS NON-INSULIN-DEPENDENT
     Route: 048
     Dates: end: 20040730
  3. ZESTRIL [Concomitant]
     Indication: HYPERTENSION
     Route: 048
     Dates: end: 20040730
  4. TOREM [Concomitant]
     Indication: HYPERTENSION
     Route: 048
  5. PREDNISONE [Concomitant]
     Indication: SCLERODERMA
     Route: 048
  6. DILTIAZEM [Concomitant]
     Indication: HYPERTENSION
     Route: 048
     Dates: end: 20040730
  7. COLCHICINE HOUDE [Concomitant]
     Indication: SCLERODERMA
     Route: 048
     Dates: end: 20040730
  8. INSULATARD NPH HUMAN [Concomitant]
     Indication: DIABETES MELLITUS NON-INSULIN-DEPENDENT
     Route: 058
     Dates: start: 20020101

REACTIONS (12)
  - ABDOMINAL PAIN UPPER [None]
  - ASTHENIA [None]
  - BACTERIA BLOOD IDENTIFIED [None]
  - BLOOD PRESSURE DECREASED [None]
  - MALAISE [None]
  - METABOLIC ACIDOSIS [None]
  - NAUSEA [None]
  - PALLOR [None]
  - RENAL FAILURE ACUTE [None]
  - SALMONELLA SEPSIS [None]
  - SEPTIC SHOCK [None]
  - VOMITING [None]
